FAERS Safety Report 14837384 (Version 2)
Quarter: 2021Q1

REPORT INFORMATION
  Report Type: Report from Study
  Country: KR (occurrence: KR)
  Receive Date: 20180502
  Receipt Date: 20210329
  Transmission Date: 20210419
  Serious: Yes (Hospitalization, Other)
  Sender: FDA-Public Use
  Company Number: KR-ASTELLAS-2017US026749

PATIENT
  Age: 66 Year
  Sex: Male

DRUGS (10)
  1. OCODONE [Concomitant]
     Active Substance: OXYCODONE HYDROCHLORIDE
     Indication: PAIN
     Dosage: 40 MG (DAILY DOSE), UNK FREQ
     Route: 048
  2. XATRAL [Concomitant]
     Active Substance: ALFUZOSIN
     Indication: BENIGN PROSTATIC HYPERPLASIA
     Dosage: 1 DF, UNKNOWN FREQ.  (XL)
     Route: 048
     Dates: start: 20170123
  3. SIGMART [Concomitant]
     Active Substance: NICORANDIL
     Indication: ANGINA PECTORIS
     Dosage: 2 DF (DAILY DOSE), UNK FREQ
     Route: 048
  4. MAXGREL [Concomitant]
     Indication: ANGINA PECTORIS
     Route: 048
  5. DUROGESIC [Concomitant]
     Active Substance: FENTANYL
     Indication: PAIN
     Dosage: 1PATCH 100MCG/H 42?
     Route: 061
  6. ENZALUTAMIDE [Suspect]
     Active Substance: ENZALUTAMIDE
     Indication: HORMONE-REFRACTORY PROSTATE CANCER
     Dosage: 160 MG, ONCE DAILY (4 CAPSULES)
     Route: 048
     Dates: start: 20170123, end: 20170518
  7. AMOSARTAN [Concomitant]
     Indication: ANGINA PECTORIS
     Dosage: 1 DF, UNKNOWN FREQ. (5/50 MG)
     Route: 048
  8. MOLSITON [Concomitant]
     Indication: ANGINA PECTORIS
     Dosage: 2 DF (DAILY DOSE), UNK FREQ
     Route: 048
  9. ENAFON [Concomitant]
     Indication: DEPRESSION
     Route: 048
  10. DILATREND [Concomitant]
     Active Substance: CARVEDILOL
     Indication: ANGINA PECTORIS
     Route: 048

REACTIONS (3)
  - Asthenia [Unknown]
  - Anxiety [Recovering/Resolving]
  - Delirium [Recovering/Resolving]

NARRATIVE: CASE EVENT DATE: 201703
